FAERS Safety Report 12538989 (Version 1)
Quarter: 2016Q3

REPORT INFORMATION
  Report Type: Spontaneous
  Country: US (occurrence: None)
  Receive Date: 20160707
  Receipt Date: 20160707
  Transmission Date: 20161109
  Serious: Yes (Death, Hospitalization)
  Sender: FDA-Public Use
  Company Number: None

PATIENT
  Age: 17 Year
  Sex: Male
  Weight: 106.1 kg

DRUGS (3)
  1. ERWINIA ASPARAGINASE [Suspect]
     Active Substance: ASPARAGINASE ERWINIA CHRYSANTHEMI
     Dates: end: 20160622
  2. DEXAMETHASONE. [Suspect]
     Active Substance: DEXAMETHASONE
     Dates: end: 20160619
  3. METHOTREXATE. [Suspect]
     Active Substance: METHOTREXATE
     Dates: end: 20160622

REACTIONS (15)
  - Crepitations [None]
  - Ventricular tachycardia [None]
  - Lip haemorrhage [None]
  - Chills [None]
  - Hypotension [None]
  - Cough [None]
  - Ejection fraction decreased [None]
  - Eye contusion [None]
  - Lactic acidosis [None]
  - Torsade de pointes [None]
  - Pancytopenia [None]
  - Urine output decreased [None]
  - Candida test positive [None]
  - Coagulopathy [None]
  - Pyrexia [None]

NARRATIVE: CASE EVENT DATE: 20160624
